FAERS Safety Report 6745798-2 (Version None)
Quarter: 2010Q2

REPORT INFORMATION
  Report Type: 
  Country: None (occurrence: None)
  Receive Date: 20100526
  Receipt Date: 20100514
  Transmission Date: 20101027
  Serious: Yes (Hospitalization)
  Sender: FDA-Public Use
  Company Number: DKLU1062339

PATIENT
  Age: 4 Year
  Sex: Male
  Weight: 16 kg

DRUGS (6)
  1. SABRIL [Suspect]
     Indication: INFANTILE SPASMS
     Dosage: 500 MG MILLIGRAM(S), 1 IN 1 D, 750 MG MILLIGRAM(S), 1 IN 1 D, 250 MG MILLIGRAM(S), 1 IN 1 D
     Dates: start: 20100514, end: 20100518
  2. SABRIL [Suspect]
     Indication: INFANTILE SPASMS
     Dosage: 500 MG MILLIGRAM(S), 1 IN 1 D, 750 MG MILLIGRAM(S), 1 IN 1 D, 250 MG MILLIGRAM(S), 1 IN 1 D
     Dates: start: 20100201
  3. SABRIL [Suspect]
     Indication: INFANTILE SPASMS
     Dosage: 500 MG MILLIGRAM(S), 1 IN 1 D, 750 MG MILLIGRAM(S), 1 IN 1 D, 250 MG MILLIGRAM(S), 1 IN 1 D
     Dates: start: 20100201
  4. DEPAKOTE [Concomitant]
  5. TOPAMAX [Concomitant]
  6. PHENOBARBITAL TAB [Concomitant]

REACTIONS (2)
  - PNEUMONIA ASPIRATION [None]
  - VISUAL ACUITY REDUCED [None]
